FAERS Safety Report 6014238-3 (Version None)
Quarter: 2008Q4

REPORT INFORMATION
  Report Type: 
  Country: None (occurrence: None)
  Receive Date: 20081219
  Receipt Date: 20080229
  Transmission Date: 20090506
  Serious: No
  Sender: FDA-Public Use
  Company Number: A0712726A

PATIENT
  Age: 75 Year
  Sex: Male

DRUGS (9)
  1. AVODART [Suspect]
     Indication: BENIGN PROSTATIC HYPERPLASIA
     Dosage: .5MG PER DAY
     Route: 048
     Dates: start: 20070401
  2. UROXATRAL [Concomitant]
  3. LIPITOR [Concomitant]
  4. LOPRESSOR [Concomitant]
  5. LOVAZA [Concomitant]
  6. TOPROL-XL [Concomitant]
  7. GLUCOSAMINE CHONDROITIN [Concomitant]
  8. ASPIRIN [Concomitant]
  9. TYLENOL (CAPLET) [Concomitant]

REACTIONS (5)
  - EJACULATION DISORDER [None]
  - ERECTILE DYSFUNCTION [None]
  - LOSS OF LIBIDO [None]
  - MICTURITION DISORDER [None]
  - PENILE SIZE REDUCED [None]
